APPROVED DRUG PRODUCT: JALYN
Active Ingredient: DUTASTERIDE; TAMSULOSIN HYDROCHLORIDE
Strength: 0.5MG;0.4MG
Dosage Form/Route: CAPSULE;ORAL
Application: N022460 | Product #001 | TE Code: AB
Applicant: WAYLIS THERAPEUTICS LLC
Approved: Jun 14, 2010 | RLD: Yes | RS: No | Type: RX